FAERS Safety Report 14281787 (Version 2)
Quarter: 2018Q2

REPORT INFORMATION
  Report Type: Spontaneous
  Country: US (occurrence: US)
  Receive Date: 20171213
  Receipt Date: 20180529
  Transmission Date: 20180711
  Serious: Yes (Hospitalization)
  Sender: FDA-Public Use
  Company Number: US-DSJP-DSU-2017-141980

PATIENT

DRUGS (3)
  1. BENICAR [Suspect]
     Active Substance: OLMESARTAN MEDOXOMIL
     Indication: BLOOD PRESSURE MANAGEMENT
     Dosage: 10 MG, QD
     Route: 048
     Dates: start: 20090227, end: 20170510
  2. BENICAR [Suspect]
     Active Substance: OLMESARTAN MEDOXOMIL
     Dosage: 5 MG, QD
     Route: 048
     Dates: start: 20090227
  3. BENICAR [Suspect]
     Active Substance: OLMESARTAN MEDOXOMIL
     Dosage: 20 MG, QD
     Route: 048
     Dates: start: 20090227, end: 20170510

REACTIONS (9)
  - Haemorrhoids [Not Recovered/Not Resolved]
  - Rectal haemorrhage [Unknown]
  - Hepatic enzyme increased [Recovering/Resolving]
  - Diverticulum intestinal [Not Recovered/Not Resolved]
  - Dizziness [Recovering/Resolving]
  - Clostridium difficile colitis [Unknown]
  - Appendicitis [Recovered/Resolved]
  - Diverticulitis [Not Recovered/Not Resolved]
  - Sprue-like enteropathy [Recovering/Resolving]

NARRATIVE: CASE EVENT DATE: 2009
